FAERS Safety Report 13596846 (Version 1)
Quarter: 2017Q2

REPORT INFORMATION
  Report Type: Spontaneous
  Country: US (occurrence: US)
  Receive Date: 20170520
  Receipt Date: 20170520
  Transmission Date: 20170830
  Serious: Yes (Life-Threatening, Hospitalization, Other)
  Sender: FDA-Public Use
  Company Number: None

PATIENT
  Age: 84 Year
  Sex: Female
  Weight: 65.97 kg

DRUGS (2)
  1. BACTRIM DS [Suspect]
     Active Substance: SULFAMETHOXAZOLE\TRIMETHOPRIM
     Route: 048
     Dates: start: 20170505, end: 20170512
  2. LISINOPRIL. [Concomitant]
     Active Substance: LISINOPRIL

REACTIONS (7)
  - Dyspnoea [None]
  - Hyperkalaemia [None]
  - Chest pain [None]
  - Drug interaction [None]
  - Chronic kidney disease [None]
  - Cardiac murmur [None]
  - Bradycardia [None]

NARRATIVE: CASE EVENT DATE: 20170512
